FAERS Safety Report 15988787 (Version 1)
Quarter: 2019Q1

REPORT INFORMATION
  Report Type: Spontaneous
  Country: FR (occurrence: FR)
  Receive Date: 20190221
  Receipt Date: 20190221
  Transmission Date: 20190418
  Serious: Yes (Hospitalization)
  Sender: FDA-Public Use
  Company Number: FR-ORION CORPORATION ORION PHARMA-19_00005582

PATIENT
  Age: 64 Year
  Sex: Female
  Weight: 91 kg

DRUGS (1)
  1. METHOTREXATE (TRADE NAME UNKNOWN) [Suspect]
     Active Substance: METHOTREXATE
     Indication: PSORIASIS
     Route: 048
     Dates: start: 20120425, end: 20180925

REACTIONS (1)
  - Endometrial adenocarcinoma [Recovered/Resolved with Sequelae]

NARRATIVE: CASE EVENT DATE: 201809
